FAERS Safety Report 21590922 (Version 1)
Quarter: 2022Q4

REPORT INFORMATION
  Report Type: Spontaneous
  Country: CN (occurrence: CN)
  Receive Date: 20221114
  Receipt Date: 20221114
  Transmission Date: 20230113
  Serious: Yes (Hospitalization)
  Sender: FDA-Public Use
  Company Number: CN-SCALL-2022-CN-000420

PATIENT
  Age: 69 Year
  Sex: Male

DRUGS (11)
  1. RABEPRAZOLE SODIUM [Suspect]
     Active Substance: RABEPRAZOLE SODIUM
     Indication: Gastrointestinal disorder prophylaxis
     Dosage: (10 MG,1 D)
     Route: 048
     Dates: start: 20220301, end: 20220309
  2. ATORVASTATIN CALCIUM [Suspect]
     Active Substance: ATORVASTATIN CALCIUM
     Dosage: (10 MG,1 D)
     Route: 048
     Dates: start: 20220301, end: 20220309
  3. ENALAPRIL MALEATE\FOLIC ACID [Suspect]
     Active Substance: ENALAPRIL MALEATE\FOLIC ACID
     Dosage: (5 MG,1 D)
     Route: 048
     Dates: start: 20220301, end: 20220309
  4. TORSEMIDE [Suspect]
     Active Substance: TORSEMIDE
     Dosage: (10 MG,1 D)
     Route: 048
     Dates: start: 20220301, end: 20220309
  5. POTASSIUM CHLORIDE [Concomitant]
     Active Substance: POTASSIUM CHLORIDE
     Route: 065
     Dates: start: 20220301, end: 20220309
  6. UNSPECIFIED INGREDIENT [Concomitant]
     Active Substance: UNSPECIFIED INGREDIENT
     Dosage: FOR } 5 YEARS DOSE AND FREQUENCY UNKNOWN
     Route: 048
  7. ILAPRAZOLE [Concomitant]
     Active Substance: ILAPRAZOLE
     Route: 065
     Dates: start: 2022, end: 20220315
  8. METOPROLOL SUCCINATE [Suspect]
     Active Substance: METOPROLOL SUCCINATE
     Dosage: (100 MG,1 D)
     Route: 048
     Dates: start: 20220301, end: 20220309
  9. LERCANIDIPINE HYDROCHLORIDE [Suspect]
     Active Substance: LERCANIDIPINE HYDROCHLORIDE
     Dosage: (10 MG,1 D)
     Route: 048
     Dates: start: 20220301, end: 20220309
  10. CLOPIDOGREL BISULFATE [Suspect]
     Active Substance: CLOPIDOGREL BISULFATE
     Dosage: (75 MG,1 D)
     Route: 048
     Dates: start: 20220316
  11. ASPIRIN [Suspect]
     Active Substance: ASPIRIN
     Dosage: (0.1 GM,1 D)
     Route: 048
     Dates: start: 20020301, end: 20220309

REACTIONS (6)
  - Upper gastrointestinal haemorrhage [Recovering/Resolving]
  - Asthenia [Recovering/Resolving]
  - Dizziness [Recovered/Resolved]
  - Faeces discoloured [Unknown]
  - Chest discomfort [Unknown]
  - Haematochezia [Unknown]

NARRATIVE: CASE EVENT DATE: 20220309
